FAERS Safety Report 8546204-8 (Version None)
Quarter: 2012Q3

REPORT INFORMATION
  Report Type: 
  Country: None (occurrence: None)
  Receive Date: 20120727
  Receipt Date: 20120724
  Transmission Date: 20120928
  Serious: Yes (Hospitalization, Other)
  Sender: FDA-Public Use
  Company Number: PHHY2012AT063653

PATIENT
  Age: 85 Year
  Sex: Male

DRUGS (2)
  1. DABIGATRAN ETEXILATE [Interacting]
     Indication: ISCHAEMIC STROKE
     Dosage: 110 MG, BID
  2. LOPERAMIDE [Suspect]
     Indication: DIARRHOEA
     Dosage: 2 MG, BID

REACTIONS (2)
  - HAEMATURIA [None]
  - THROMBIN TIME PROLONGED [None]
